FAERS Safety Report 6493403-5 (Version None)
Quarter: 2009Q4

REPORT INFORMATION
  Report Type: 
  Country: None (occurrence: None)
  Receive Date: 20091214
  Receipt Date: 20091209
  Transmission Date: 20100525
  Serious: Yes (Hospitalization)
  Sender: FDA-Public Use
  Company Number: DE-MERCK-0910DEU00112

PATIENT
  Age: 60 Year
  Sex: Male

DRUGS (10)
  1. PRIMAXIN [Suspect]
     Indication: PNEUMONIA
     Route: 065
     Dates: start: 20090611, end: 20090622
  2. AMOXICILLIN AND CLAVULANATE POTASSIUM [Suspect]
     Indication: ERYSIPELAS
     Route: 065
     Dates: start: 20090728, end: 20090729
  3. FLUCONAZOLE [Suspect]
     Indication: PNEUMONIA
     Route: 065
     Dates: start: 20090611, end: 20090622
  4. PENICILLIN G [Suspect]
     Indication: ERYSIPELAS
     Route: 065
     Dates: start: 20090429, end: 20090501
  5. RAMIPRIL [Concomitant]
     Route: 065
  6. METOPROLOL [Concomitant]
     Route: 065
  7. FUROSEMIDE [Concomitant]
     Route: 065
  8. DIGITOXIN [Concomitant]
     Route: 065
  9. ZOCOR [Concomitant]
     Route: 048
  10. PANTOPRAZOLE SODIUM [Concomitant]
     Route: 048

REACTIONS (2)
  - ERYSIPELAS [None]
  - PANCYTOPENIA [None]
